FAERS Safety Report 14195399 (Version 2)
Quarter: 2017Q4

REPORT INFORMATION
  Report Type: Spontaneous
  Country: BR (occurrence: BR)
  Receive Date: 20171116
  Receipt Date: 20171211
  Transmission Date: 20180321
  Serious: No
  Sender: FDA-Public Use
  Company Number: BR-PFIZER INC-2017487369

PATIENT
  Age: 32 Year
  Sex: Male
  Weight: 107 kg

DRUGS (1)
  1. GENOTROPIN [Suspect]
     Active Substance: SOMATROPIN
     Indication: MUSCLE MASS
     Dosage: 1 DF, 1X/DAY (1 APPLICATION PER DAY IN THE EVENING)
     Dates: start: 201704

REACTIONS (1)
  - Product use in unapproved indication [Unknown]

NARRATIVE: CASE EVENT DATE: 201704
